FAERS Safety Report 5766176-9 (Version None)
Quarter: 2008Q2

REPORT INFORMATION
  Report Type: 
  Country: None (occurrence: None)
  Receive Date: 20080605
  Receipt Date: 20080523
  Transmission Date: 20081010
  Serious: Yes (Death)
  Sender: FDA-Public Use
  Company Number: US023612

PATIENT
  Age: 40 Year
  Sex: Female

DRUGS (2)
  1. MODAFINIL [Suspect]
     Dosage: 200 MG QD ORAL
     Route: 048
  2. BETASERON [Suspect]
     Indication: MULTIPLE SCLEROSIS

REACTIONS (1)
  - OVARIAN CANCER METASTATIC [None]
